FAERS Safety Report 9415332 (Version 6)
Quarter: 2014Q4

REPORT INFORMATION
  Report Type: Spontaneous
  Country: US (occurrence: US)
  Receive Date: 20130723
  Receipt Date: 20141002
  Transmission Date: 20150529
  Serious: Yes (Death, Hospitalization, Disabling, Other)
  Sender: FDA-Public Use
  Company Number: US-009507513-1307USA011850

PATIENT
  Sex: Female
  Weight: 226.98 kg

DRUGS (4)
  1. JANUVIA [Suspect]
     Active Substance: SITAGLIPTIN PHOSPHATE
     Indication: TYPE 2 DIABETES MELLITUS
     Dosage: 100 MG, QD
     Route: 048
     Dates: start: 20070213, end: 20111018
  2. JANUMET [Suspect]
     Active Substance: METFORMIN HYDROCHLORIDE\SITAGLIPTIN PHOSPHATE
     Dosage: 50/1,000 UNK, UNK
     Route: 048
     Dates: start: 20091012
  3. BYETTA [Suspect]
     Active Substance: EXENATIDE
     Indication: TYPE 2 DIABETES MELLITUS
     Dosage: TWICE DAILY
     Dates: start: 200801, end: 200910
  4. JANUVIA [Suspect]
     Active Substance: SITAGLIPTIN PHOSPHATE
     Dosage: TWICE DAILY
     Route: 048
     Dates: start: 200801, end: 200910

REACTIONS (27)
  - Pancreatic carcinoma [Fatal]
  - Chest pain [Unknown]
  - Death [Fatal]
  - Pain in extremity [Unknown]
  - Stress [Unknown]
  - Suicidal ideation [Unknown]
  - Hypercholesterolaemia [Unknown]
  - Gastrooesophageal reflux disease [Unknown]
  - Pancreatectomy [Unknown]
  - Intentional overdose [Unknown]
  - Diabetes mellitus inadequate control [Unknown]
  - Pneumonia [Unknown]
  - Back pain [Not Recovered/Not Resolved]
  - Surgery [Unknown]
  - Transient ischaemic attack [Unknown]
  - Pulmonary fibrosis [Unknown]
  - Insulin-requiring type 2 diabetes mellitus [Unknown]
  - Splenectomy [Unknown]
  - Benign pancreatic neoplasm [Unknown]
  - Pulmonary embolism [Recovering/Resolving]
  - Deep vein thrombosis [Unknown]
  - Treatment noncompliance [Unknown]
  - Chest pain [Unknown]
  - Abdominal pain [Unknown]
  - Depression [Unknown]
  - Hypertension [Unknown]
  - Arthralgia [Not Recovered/Not Resolved]

NARRATIVE: CASE EVENT DATE: 20091010
